FAERS Safety Report 8999247 (Version 1)
Quarter: 2013Q1

REPORT INFORMATION
  Report Type: Spontaneous
  Country: US (occurrence: US)
  Receive Date: 20130103
  Receipt Date: 20130103
  Transmission Date: 20140127
  Serious: Yes (Disabling)
  Sender: FDA-Public Use
  Company Number: US-JNJFOC-20121213576

PATIENT
  Age: 56 Year
  Sex: Female
  Weight: 55 kg

DRUGS (17)
  1. DOXIL [Suspect]
     Indication: OVARIAN CANCER
     Dosage: 28 DAY
     Route: 042
     Dates: start: 20090302, end: 20090610
  2. INVESTIGATIONAL DRUG [Suspect]
     Indication: OVARIAN CANCER
     Dosage: MON-WED-FRI; EVERY OTHER WEEK
     Route: 042
     Dates: start: 20090302, end: 20090708
  3. INVESTIGATIONAL DRUG [Suspect]
     Indication: OVARIAN CANCER
     Dosage: MON-WED-FRI; EVERY OTHER WEEK
     Route: 042
     Dates: start: 20090708, end: 20090720
  4. DURAGESIC [Concomitant]
     Route: 065
  5. LORAZEPAM [Concomitant]
     Route: 065
  6. PERCOCET [Concomitant]
     Route: 065
  7. MILK OF MAGNESIA [Concomitant]
     Route: 065
  8. NICODERM [Concomitant]
     Route: 065
  9. STOOL SOFTENER [Concomitant]
     Route: 065
  10. CALCIUM [Concomitant]
     Route: 065
  11. IRON [Concomitant]
     Route: 065
  12. MAGNESIUM CITRATE [Concomitant]
     Route: 065
  13. LACTULOSE [Concomitant]
     Route: 065
  14. OTHER AGENTS FOR LOCAL ORAL TREATMENT [Concomitant]
     Route: 065
  15. FLEXERIL [Concomitant]
     Route: 065
  16. COMPAZINE [Concomitant]
     Route: 065
  17. NEURONTIN [Concomitant]
     Route: 065

REACTIONS (1)
  - Peripheral sensory neuropathy [Not Recovered/Not Resolved]
